FAERS Safety Report 11872324 (Version 2)
Quarter: 2015Q4

REPORT INFORMATION
  Report Type: Spontaneous
  Country: JP (occurrence: JP)
  Receive Date: 20151228
  Receipt Date: 20151228
  Transmission Date: 20160305
  Serious: Yes (Death, Hospitalization)
  Sender: FDA-Public Use
  Company Number: JP-BAYER-2015-490125

PATIENT
  Age: 89 Year
  Sex: Male

DRUGS (4)
  1. LORNOXICAM [Concomitant]
     Active Substance: LORNOXICAM
     Indication: CEREBRAL INFARCTION
  2. ACETYLSALICYLIC ACID({=100 MG) [Suspect]
     Active Substance: ASPIRIN
     Indication: CEREBRAL INFARCTION
  3. ACETYLSALICYLIC ACID({=100 MG) [Suspect]
     Active Substance: ASPIRIN
     Indication: BACK PAIN
     Dosage: 100 MG, OM
     Route: 048
  4. LORNOXICAM [Concomitant]
     Active Substance: LORNOXICAM
     Indication: BACK PAIN
     Dosage: DAILY DOSE 12 MG
     Route: 048

REACTIONS (8)
  - Gastric fistula [None]
  - Shock [Recovering/Resolving]
  - Pneumopericardium [Recovering/Resolving]
  - Pericarditis constrictive [None]
  - Cardio-respiratory arrest [Fatal]
  - Myocardial infarction [None]
  - Gastric ulcer perforation [Recovering/Resolving]
  - Loss of consciousness [Recovering/Resolving]

NARRATIVE: CASE EVENT DATE: 201412
